FAERS Safety Report 25524679 (Version 3)
Quarter: 2025Q3

REPORT INFORMATION
  Report Type: Spontaneous
  Country: US (occurrence: US)
  Receive Date: 20250707
  Receipt Date: 20250826
  Transmission Date: 20251021
  Serious: Yes (Other)
  Sender: CSL BEHRING
  Company Number: US-BEH-2025210371

PATIENT
  Sex: Female

DRUGS (15)
  1. PRIVIGEN [Suspect]
     Active Substance: HUMAN IMMUNOGLOBULIN G
     Indication: Immunodeficiency common variable
     Dosage: 50 MG, QOW
     Route: 042
     Dates: start: 202310
  2. PRIVIGEN [Suspect]
     Active Substance: HUMAN IMMUNOGLOBULIN G
     Dosage: 40 MG, QOW
     Route: 058
     Dates: start: 202310
  3. PRIVIGEN [Suspect]
     Active Substance: HUMAN IMMUNOGLOBULIN G
     Dosage: 10 MG, QOW
     Route: 058
     Dates: start: 202310
  4. PRIVIGEN [Suspect]
     Active Substance: HUMAN IMMUNOGLOBULIN G
     Dosage: 40 G, QOW
     Route: 042
     Dates: start: 201610
  5. PRIVIGEN [Suspect]
     Active Substance: HUMAN IMMUNOGLOBULIN G
     Dosage: 10 G, QOW
     Route: 042
     Dates: start: 201610
  6. BACTERIOSTATIC WATER [Concomitant]
     Active Substance: WATER
  7. HEPARIN [Concomitant]
     Active Substance: HEPARIN SODIUM
  8. DUPIXENT [Concomitant]
     Active Substance: DUPILUMAB
  9. DIPHENHYDRAMINE [Concomitant]
     Active Substance: DIPHENHYDRAMINE
  10. SODIUM CHLORIDE [Concomitant]
     Active Substance: SODIUM CHLORIDE
  11. ONDANSETRON [Concomitant]
     Active Substance: ONDANSETRON
  12. METHYLPREDNISOLONE [Concomitant]
     Active Substance: METHYLPREDNISOLONE
  13. DUPIXENT [Concomitant]
     Active Substance: DUPILUMAB
  14. HEPARIN [Concomitant]
     Active Substance: HEPARIN SODIUM
  15. DEXTROSE [Concomitant]
     Active Substance: DEXTROSE MONOHYDRATE

REACTIONS (10)
  - Drug ineffective [Unknown]
  - Bronchitis [Unknown]
  - Illness [Unknown]
  - Infection [Unknown]
  - Headache [Unknown]
  - Pain [Unknown]
  - Condition aggravated [Unknown]
  - Sinusitis [Unknown]
  - Headache [Unknown]
  - Infusion related reaction [Unknown]
